FAERS Safety Report 4370761-9 (Version None)
Quarter: 2004Q2

REPORT INFORMATION
  Report Type: 
  Country: None (occurrence: None)
  Receive Date: 20040601
  Receipt Date: 20040514
  Transmission Date: 20050107
  Serious: Yes (Other)
  Sender: FDA-Public Use
  Company Number: PHBS2004KR06576

PATIENT
  Age: 62 Year
  Sex: Female

DRUGS (1)
  1. VISUDYNE [Suspect]
     Indication: OCULAR VASCULAR DISORDER

REACTIONS (5)
  - ANGIOGRAM ABNORMAL [None]
  - RETINAL HAEMORRHAGE [None]
  - RETINAL SCAR [None]
  - RETINAL VASCULAR OCCLUSION [None]
  - SUBRETINAL FIBROSIS [None]
